FAERS Safety Report 14598964 (Version 1)
Quarter: 2018Q1

REPORT INFORMATION
  Report Type: Spontaneous
  Country: US (occurrence: US)
  Receive Date: 20180302
  Receipt Date: 20180302
  Transmission Date: 20180509
  Serious: No
  Sender: FDA-Public Use
  Company Number: None

PATIENT
  Age: 74 Year
  Sex: Male

DRUGS (1)
  1. FINASTERIDE. [Suspect]
     Active Substance: FINASTERIDE
     Indication: PROSTATIC DISORDER
     Route: 048
     Dates: start: 20170920, end: 20180301

REACTIONS (4)
  - Hyperaesthesia [None]
  - Alopecia [None]
  - Nocturia [None]
  - Product substitution issue [None]

NARRATIVE: CASE EVENT DATE: 20180301
